FAERS Safety Report 18446572 (Version 1)
Quarter: 2020Q4

REPORT INFORMATION
  Report Type: Spontaneous
  Country: US (occurrence: US)
  Receive Date: 20201030
  Receipt Date: 20201030
  Transmission Date: 20210114
  Serious: Yes (Other)
  Sender: FDA-Public Use
  Company Number: US-BAYER-2020-227437

PATIENT
  Sex: Female

DRUGS (1)
  1. MIRENA [Suspect]
     Active Substance: LEVONORGESTREL
     Dosage: 20?G PER DAY, CONTINUOUSLY
     Route: 015
     Dates: start: 201410

REACTIONS (7)
  - Pelvic infection [None]
  - Pain [None]
  - Vaginal discharge [None]
  - Pelvic pain [None]
  - Shock [None]
  - Pyrexia [None]
  - Chills [None]
